FAERS Safety Report 5670886-1 (Version None)
Quarter: 2008Q1

REPORT INFORMATION
  Report Type: 
  Country: None (occurrence: None)
  Receive Date: 20080318
  Receipt Date: 20080310
  Transmission Date: 20080703
  Serious: Yes (Other)
  Sender: FDA-Public Use
  Company Number: A0712511A

PATIENT
  Age: 67 Year
  Sex: Male

DRUGS (2)
  1. AVODART [Suspect]
     Indication: DRUG USE FOR UNKNOWN INDICATION
     Route: 048
     Dates: start: 20080201
  2. WALNUT [Suspect]
     Indication: ILL-DEFINED DISORDER

REACTIONS (9)
  - ANGIOEDEMA [None]
  - DRUG HYPERSENSITIVITY [None]
  - DYSPEPSIA [None]
  - EYE SWELLING [None]
  - FOOD ALLERGY [None]
  - HYPOAESTHESIA FACIAL [None]
  - LIP SWELLING [None]
  - PARAESTHESIA [None]
  - SWELLING FACE [None]
